FAERS Safety Report 8770125 (Version 3)
Quarter: 2013Q4

REPORT INFORMATION
  Report Type: Spontaneous
  Country: US (occurrence: US)
  Receive Date: 20120905
  Receipt Date: 20131107
  Transmission Date: 20140711
  Serious: No
  Sender: FDA-Public Use
  Company Number: US-009507513-1208USA010742

PATIENT
  Sex: Female

DRUGS (1)
  1. MAXALT [Suspect]
     Indication: HEADACHE
     Dosage: 10 MG, PRN
     Route: 048
     Dates: start: 20120823

REACTIONS (2)
  - Dysgeusia [Unknown]
  - Hypersensitivity [Unknown]
